FAERS Safety Report 10169233 (Version 1)
Quarter: 2014Q2

REPORT INFORMATION
  Report Type: Spontaneous
  Country: US (occurrence: None)
  Receive Date: 20140509
  Receipt Date: 20140509
  Transmission Date: 20141212
  Serious: Yes (Hospitalization)
  Sender: FDA-Public Use
  Company Number: UTC-047978

PATIENT
  Age: 54 Year
  Sex: Female

DRUGS (1)
  1. REMODULIN [Suspect]
     Indication: PULMONARY ARTERIAL HYPERTENSION
     Dosage: 84.96 UG/KG (0.059 UG/KG, 1 IN 1 MIN), SUBCUTANEOUS
     Dates: start: 20140306

REACTIONS (4)
  - Pyrexia [None]
  - Cough [None]
  - Productive cough [None]
  - Dyspnoea [None]
